FAERS Safety Report 8473768-5 (Version None)
Quarter: 2012Q2

REPORT INFORMATION
  Report Type: 
  Country: None (occurrence: None)
  Receive Date: 20120628
  Receipt Date: 20120103
  Transmission Date: 20120825
  Serious: Yes (Other)
  Sender: FDA-Public Use
  Company Number: US-MYLANLABS-2011S1022524

PATIENT
  Age: 40 Year
  Sex: Male

DRUGS (8)
  1. JANUVIA [Concomitant]
  2. ZYRTEC [Concomitant]
  3. CLOZAPINE [Suspect]
  4. DEPAKOTE [Concomitant]
     Dosage: USING 500MG TABLET
  5. LEVOTHYROXINE [Concomitant]
  6. EFFEXOR [Concomitant]
  7. SIMVASTATIN [Concomitant]
  8. CLOZAPINE [Suspect]
     Indication: SCHIZOPHRENIA, UNDIFFERENTIATED TYPE
     Dates: end: 20111123

REACTIONS (1)
  - GRANULOCYTOPENIA [None]
